FAERS Safety Report 15778871 (Version 1)
Quarter: 2019Q1

REPORT INFORMATION
  Report Type: Spontaneous
  Country: US (occurrence: US)
  Receive Date: 20190101
  Receipt Date: 20190101
  Transmission Date: 20190417
  Serious: Yes (Other)
  Sender: FDA-Public Use
  Company Number: US-ASTRAZENECA-2018SF71152

PATIENT
  Age: 935 Month
  Sex: Female
  Weight: 55.8 kg

DRUGS (4)
  1. TAMOXIFEN [Suspect]
     Active Substance: TAMOXIFEN
     Route: 048
  2. FASLODEX [Suspect]
     Active Substance: FULVESTRANT
     Indication: BREAST CANCER METASTATIC
     Route: 030
  3. IBRANCE [Suspect]
     Active Substance: PALBOCICLIB
     Indication: BREAST CANCER METASTATIC
     Route: 048
  4. FASLODEX [Suspect]
     Active Substance: FULVESTRANT
     Route: 030

REACTIONS (9)
  - Metastases to bone [Unknown]
  - Limb mass [Not Recovered/Not Resolved]
  - Body height decreased [Unknown]
  - Injection site pain [Unknown]
  - Metastases to spine [Unknown]
  - Erythema [Unknown]
  - Viral infection [Unknown]
  - Phlebitis [Unknown]
  - Thrombosis [Unknown]

NARRATIVE: CASE EVENT DATE: 201810
